FAERS Safety Report 6505999-5 (Version None)
Quarter: 2009Q4

REPORT INFORMATION
  Report Type: 
  Country: None (occurrence: None)
  Receive Date: 20091218
  Receipt Date: 20091207
  Transmission Date: 20100525
  Serious: Yes (Other)
  Sender: FDA-Public Use
  Company Number: US-PFIZER INC-2009306887

PATIENT
  Sex: Female

DRUGS (1)
  1. GEODON [Suspect]

REACTIONS (4)
  - DRUG INEFFECTIVE [None]
  - DYSKINESIA [None]
  - INTENTIONAL DRUG MISUSE [None]
  - SUICIDE ATTEMPT [None]
